FAERS Safety Report 4321065-1 (Version None)
Quarter: 2004Q1

REPORT INFORMATION
  Report Type: 
  Country: None (occurrence: None)
  Receive Date: 20040322
  Receipt Date: 20040315
  Transmission Date: 20041129
  Serious: Yes (Life-Threatening)
  Sender: FDA-Public Use
  Company Number: PHRM2004FR01239

PATIENT
  Age: 30 Year
  Sex: Male

DRUGS (2)
  1. TRILEPTAL [Suspect]
     Dosage: 600 MG, BID
     Route: 048
     Dates: start: 20030501, end: 20040201
  2. KEPPRA [Suspect]
     Indication: EPILEPSY
     Route: 048
     Dates: start: 20030501, end: 20040201

REACTIONS (4)
  - DRUG WITHDRAWAL SYNDROME [None]
  - PANCYTOPENIA [None]
  - PYREXIA [None]
  - STATUS EPILEPTICUS [None]
